FAERS Safety Report 7221112-3 (Version None)
Quarter: 2011Q1

REPORT INFORMATION
  Report Type: 
  Country: None (occurrence: None)
  Receive Date: 20110112
  Receipt Date: 20110107
  Transmission Date: 20110831
  Serious: Yes (Other)
  Sender: FDA-Public Use
  Company Number: US-PFIZER INC-2011004968

PATIENT
  Sex: Female
  Weight: 74.8 kg

DRUGS (3)
  1. DEPO-PROVERA [Suspect]
     Indication: OFF LABEL USE
     Dosage: 150 MG, UNK
     Route: 030
     Dates: start: 20091101, end: 20100601
  2. DEPO-PROVERA [Suspect]
     Indication: MENSTRUATION IRREGULAR
  3. DEPO-PROVERA [Suspect]
     Indication: DYSMENORRHOEA

REACTIONS (2)
  - WEIGHT INCREASED [None]
  - DEPRESSION [None]
